FAERS Safety Report 8374806-0 (Version None)
Quarter: 2012Q2

REPORT INFORMATION
  Report Type: 
  Country: None (occurrence: None)
  Receive Date: 20120521
  Receipt Date: 20120509
  Transmission Date: 20120825
  Serious: Yes (Other)
  Sender: FDA-Public Use
  Company Number: CA-JNJFOC-20120510271

PATIENT
  Sex: Female
  Weight: 63 kg

DRUGS (4)
  1. BIRTH CONTROL PILL [Concomitant]
     Route: 065
  2. REMICADE [Suspect]
     Dosage: 24TH INFUSION
     Route: 042
     Dates: start: 20120306
  3. REMICADE [Suspect]
     Indication: CROHN'S DISEASE
     Route: 042
     Dates: start: 20080709
  4. PROBIOTICS [Concomitant]
     Route: 065

REACTIONS (2)
  - ROAD TRAFFIC ACCIDENT [None]
  - INFLAMMATION [None]
